FAERS Safety Report 8189303-5 (Version None)
Quarter: 2012Q1

REPORT INFORMATION
  Report Type: 
  Country: None (occurrence: None)
  Receive Date: 20120307
  Receipt Date: 20120227
  Transmission Date: 20120608
  Serious: Yes (Hospitalization, Other)
  Sender: FDA-Public Use
  Company Number: US-BAYER-2011-064171

PATIENT
  Sex: Female
  Weight: 70.295 kg

DRUGS (1)
  1. YAZ [Suspect]
     Indication: ACNE
     Dosage: UNK
     Dates: start: 20071201, end: 20080701

REACTIONS (8)
  - GASTROINTESTINAL DISORDER [None]
  - ANHEDONIA [None]
  - STILLBIRTH [None]
  - INJURY [None]
  - ABDOMINAL PAIN [None]
  - ABORTION SPONTANEOUS [None]
  - PORTAL VEIN THROMBOSIS [None]
  - ANXIETY [None]
